FAERS Safety Report 13026951 (Version 1)
Quarter: 2016Q4

REPORT INFORMATION
  Report Type: Spontaneous
  Country: BR (occurrence: BR)
  Receive Date: 20161214
  Receipt Date: 20161214
  Transmission Date: 20170207
  Serious: Yes (Other)
  Sender: FDA-Public Use
  Company Number: BR-PFIZER INC-2016571869

PATIENT
  Age: 77 Year
  Sex: Female
  Weight: 58 kg

DRUGS (5)
  1. ZOLOFT [Suspect]
     Active Substance: SERTRALINE HYDROCHLORIDE
     Indication: DEPRESSION
     Dosage: 50 MG (1 TABLET), DAILY
     Route: 048
     Dates: start: 20160420
  2. SYNTHROID [Concomitant]
     Active Substance: LEVOTHYROXINE SODIUM
     Indication: THYROID DISORDER
     Dosage: 1 TABLET, DAILY
     Route: 048
  3. ROSUVAS [Concomitant]
     Indication: CAROTID ARTERIOSCLEROSIS
     Dosage: 1 TABLET, DAILY
     Route: 048
  4. CELEBRA [Suspect]
     Active Substance: CELECOXIB
     Indication: PAIN
     Dosage: 200 MG (1 ^TABLET^)
     Route: 048
  5. OMEPRAZOLE. [Concomitant]
     Active Substance: OMEPRAZOLE
     Indication: GASTRIC DISORDER
     Dosage: 1 TABLET, DAILY
     Route: 048

REACTIONS (4)
  - Cerebrovascular accident [Unknown]
  - Carotid arteriosclerosis [Unknown]
  - Spinal pain [Unknown]
  - Diarrhoea [Unknown]

NARRATIVE: CASE EVENT DATE: 2016
